FAERS Safety Report 7469623-X (Version None)
Quarter: 2011Q2

REPORT INFORMATION
  Report Type: 
  Country: None (occurrence: None)
  Receive Date: 20110510
  Receipt Date: 20110504
  Transmission Date: 20111010
  Serious: Yes (Hospitalization, Other)
  Sender: FDA-Public Use
  Company Number: US-B.I. PHARMACEUTICALS,INC./RIDGEFIELD-2011-BP-07735BP

PATIENT
  Sex: Female
  Weight: 65.32 kg

DRUGS (15)
  1. PRADAXA [Suspect]
     Indication: ATRIAL FIBRILLATION
     Dosage: 300 MG
     Route: 048
     Dates: start: 20110207, end: 20110214
  2. MAG OXIDE [Concomitant]
     Dosage: 400 MG
  3. METOPROLOL SUCCINATE [Concomitant]
     Dosage: 100 MG
  4. SYNTHROID [Concomitant]
     Dosage: 75 MCG
  5. PROTONIX [Suspect]
     Dosage: 40 MG
  6. CALCIUM [Concomitant]
  7. POTASSIUM [Concomitant]
     Dosage: 20 MEQ
  8. PRADAXA [Suspect]
     Dosage: 300 MG
     Route: 048
     Dates: start: 20110218
  9. NORPACE CR [Concomitant]
     Dosage: 300 MG
  10. AVAPRO [Suspect]
     Dosage: 300 MG
  11. VITAMIN C [Concomitant]
  12. VITAMIN B COMPLEX CAP [Concomitant]
  13. DILTIAZEM [Concomitant]
  14. VYTORIN [Concomitant]
  15. MULTI-VITAMIN [Concomitant]

REACTIONS (9)
  - HAEMORRHOIDS [None]
  - HAEMORRHOIDAL HAEMORRHAGE [None]
  - DECREASED APPETITE [None]
  - WEIGHT DECREASED [None]
  - FLATULENCE [None]
  - VEIN PAIN [None]
  - APPENDICITIS [None]
  - VENTRICULAR EXTRASYSTOLES [None]
  - ABDOMINAL PAIN [None]
